FAERS Safety Report 16341823 (Version 1)
Quarter: 2019Q2

REPORT INFORMATION
  Report Type: Spontaneous
  Country: GB (occurrence: GB)
  Receive Date: 20190522
  Receipt Date: 20190522
  Transmission Date: 20190711
  Serious: Yes (Other)
  Sender: FDA-Public Use
  Company Number: GB-TEVA-2019-GB-1051007

PATIENT
  Age: 81 Year
  Sex: Female
  Weight: 65 kg

DRUGS (6)
  1. BUMETANIDE. [Concomitant]
     Active Substance: BUMETANIDE
     Route: 048
  2. SITAGLIPTIN [Concomitant]
     Active Substance: SITAGLIPTIN
     Route: 048
  3. IBUPROFEN. [Suspect]
     Active Substance: IBUPROFEN
     Indication: ANALGESIC THERAPY
     Dosage: ON FOUR OCCASIONS.
     Dates: start: 2019
  4. BEZAFIBRATE [Concomitant]
     Active Substance: BEZAFIBRATE
     Route: 048
  5. GLICLAZIDE [Interacting]
     Active Substance: GLICLAZIDE
     Indication: DIABETES MELLITUS
     Dosage: 80 MILLIGRAM DAILY;
     Route: 048
     Dates: start: 1950
  6. CANDESARTAN. [Concomitant]
     Active Substance: CANDESARTAN
     Route: 048

REACTIONS (2)
  - Drug interaction [Unknown]
  - Hypoglycaemia [Recovered/Resolved]

NARRATIVE: CASE EVENT DATE: 2019
